FAERS Safety Report 7965975-2 (Version None)
Quarter: 2011Q4

REPORT INFORMATION
  Report Type: 
  Country: None (occurrence: None)
  Receive Date: 20111208
  Receipt Date: 20111128
  Transmission Date: 20120403
  Serious: Yes (Other)
  Sender: FDA-Public Use
  Company Number: CA-JNJFOC-20111110916

PATIENT
  Sex: Female
  Weight: 46 kg

DRUGS (10)
  1. ARAVA [Concomitant]
     Indication: ARTHRITIS
     Route: 048
     Dates: start: 20040101
  2. FLURAZEPAM [Concomitant]
     Indication: SLEEP DISORDER
     Dosage: BIO-FLURAZEPAM  AT BEDTIME
     Route: 048
     Dates: start: 19990101
  3. UNSPECIFIED EYE MEDICATION [Concomitant]
     Indication: RETINAL VASCULAR THROMBOSIS
     Dosage: ^JAMASA^, CLOT IN THE EYE, 80 MG, ORALLY, QD
     Route: 048
     Dates: start: 20060101
  4. REMICADE [Suspect]
     Indication: RHEUMATOID ARTHRITIS
     Route: 042
     Dates: start: 20030509
  5. PREDNISONE TAB [Concomitant]
     Indication: ARTHRITIS
     Route: 048
     Dates: start: 20010101
  6. XALATAN [Concomitant]
     Indication: OCULAR HYPERTENSION
     Dosage: AT BEDTIME
     Route: 047
     Dates: start: 20010101
  7. BISOPROLOL FUMARATE [Concomitant]
     Indication: HYPERTENSION
     Dosage: NOVO-BISOPROLOL   5 MG, 1/2 TABLET QD
     Dates: start: 20110101
  8. CELEBREX [Concomitant]
     Indication: ARTHRITIS
     Route: 048
     Dates: start: 20030101
  9. PRILOSEC [Concomitant]
     Indication: GASTROOESOPHAGEAL REFLUX DISEASE
     Dosage: AT BEDTIME
     Route: 048
     Dates: start: 19960101
  10. ACTONEL [Concomitant]
     Indication: HYPERTENSION
     Route: 048
     Dates: start: 20110101

REACTIONS (1)
  - LUNG NEOPLASM [None]
